FAERS Safety Report 6832527-7 (Version None)
Quarter: 2010Q3

REPORT INFORMATION
  Report Type: 
  Country: None (occurrence: None)
  Receive Date: 20100707
  Receipt Date: 20100622
  Transmission Date: 20110219
  Serious: Yes (Death)
  Sender: FDA-Public Use
  Company Number: 1000014829

PATIENT
  Age: 23 Year
  Sex: Male

DRUGS (4)
  1. CITALOPRAM HYDROBROMIDE [Suspect]
  2. DIAZEPAM [Concomitant]
  3. METHADONE HCL [Concomitant]
  4. TETRAHYDROCANNABINOL [Concomitant]

REACTIONS (1)
  - DRUG TOXICITY [None]
